FAERS Safety Report 7023513-5 (Version None)
Quarter: 2010Q3

REPORT INFORMATION
  Report Type: 
  Country: None (occurrence: None)
  Receive Date: 20100929
  Receipt Date: 20100929
  Transmission Date: 20110219
  Serious: Yes (Hospitalization)
  Sender: FDA-Public Use
  Company Number: None

PATIENT
  Age: 54 Year
  Sex: Male
  Weight: 70 kg

DRUGS (2)
  1. CISPLATIN [Suspect]
     Dosage: 124 MG ONCE IV
     Route: 042
     Dates: start: 20100428, end: 20100428
  2. ETOPOSIDE [Suspect]
     Dosage: 124 MG EVERY DAY IV
     Route: 042
     Dates: start: 20100428, end: 20100430

REACTIONS (2)
  - NAUSEA [None]
  - VOMITING [None]
